FAERS Safety Report 6108731-2 (Version None)
Quarter: 2009Q1

REPORT INFORMATION
  Report Type: 
  Country: None (occurrence: None)
  Receive Date: 20090306
  Receipt Date: 20090306
  Transmission Date: 20090719
  Serious: Yes (Hospitalization)
  Sender: FDA-Public Use
  Company Number: None

PATIENT
  Age: 78 Year
  Sex: Female
  Weight: 54.4316 kg

DRUGS (2)
  1. GABAPENTIN [Suspect]
     Indication: NEUROPATHY PERIPHERAL
     Dosage: 300 MG 3X USED ONCE DID NOT TAKE AGAIN
  2. GABAPENTIN [Suspect]

REACTIONS (4)
  - ABASIA [None]
  - DISORIENTATION [None]
  - FALL [None]
  - VISUAL IMPAIRMENT [None]
